FAERS Safety Report 5844144-6 (Version None)
Quarter: 2008Q3

REPORT INFORMATION
  Report Type: 
  Country: None (occurrence: None)
  Receive Date: 20080813
  Receipt Date: 20080801
  Transmission Date: 20090109
  Serious: Yes (Hospitalization, Other)
  Sender: FDA-Public Use
  Company Number: US-PFIZER INC-2007032852

PATIENT
  Sex: Female

DRUGS (7)
  1. DILANTIN [Suspect]
     Indication: EPILEPSY
     Route: 048
     Dates: start: 20030321, end: 20030501
  2. TYLENOL [Concomitant]
  3. PAXIL [Concomitant]
  4. AMITRIPTYLINE HCL [Concomitant]
  5. VERAPAMIL [Concomitant]
  6. PRILOSEC [Concomitant]
  7. LORTAB [Concomitant]

REACTIONS (5)
  - ACUTE GENERALISED EXANTHEMATOUS PUSTULOSIS [None]
  - DEEP VEIN THROMBOSIS [None]
  - HYPERSENSITIVITY [None]
  - STEVENS-JOHNSON SYNDROME [None]
  - TOXIC EPIDERMAL NECROLYSIS [None]
